FAERS Safety Report 8519712-3 (Version None)
Quarter: 2012Q3

REPORT INFORMATION
  Report Type: 
  Country: None (occurrence: None)
  Receive Date: 20120719
  Receipt Date: 20120710
  Transmission Date: 20120928
  Serious: Yes (Hospitalization)
  Sender: FDA-Public Use
  Company Number: US-BIOGENIDEC-2012BI011470

PATIENT
  Age: 56 Year
  Sex: Female
  Weight: 53 kg

DRUGS (11)
  1. TYSABRI [Suspect]
     Route: 042
     Dates: start: 20120213, end: 20120312
  2. VITAMIN D [Concomitant]
     Indication: VITAMIN D DEFICIENCY
     Route: 048
  3. GELNIQUE [Concomitant]
     Route: 062
  4. LEXAPRO [Concomitant]
     Indication: DEPRESSION
     Route: 048
  5. OXYTROL [Concomitant]
     Indication: HYPERTONIC BLADDER
     Route: 023
  6. MACROBID [Concomitant]
     Indication: URINARY TRACT INFECTION
     Route: 048
  7. PREMARIN [Concomitant]
     Indication: POSTMENOPAUSE
     Route: 048
  8. PROVIGIL [Concomitant]
     Indication: CHRONIC FATIGUE SYNDROME
     Route: 048
  9. TYSABRI [Suspect]
     Indication: MULTIPLE SCLEROSIS
     Route: 042
     Dates: start: 20080407, end: 20100714
  10. VESICARE [Concomitant]
     Indication: URINARY INCONTINENCE
     Route: 048
  11. ASPIRIN [Concomitant]
     Indication: ISCHAEMIC HEART DISEASE PROPHYLAXIS
     Route: 048

REACTIONS (4)
  - CHOLELITHIASIS [None]
  - HEPATIC FAILURE [None]
  - URINARY TRACT INFECTION [None]
  - HEPATITIS CHOLESTATIC [None]
